FAERS Safety Report 9033001 (Version 1)
Quarter: 2013Q1

REPORT INFORMATION
  Report Type: Spontaneous
  Country: FR (occurrence: None)
  Receive Date: 20130110
  Receipt Date: 20130110
  Transmission Date: 20140127
  Serious: Yes (Hospitalization)
  Sender: FDA-Public Use
  Company Number: 1547678

PATIENT
  Age: 80 Year
  Sex: Female

DRUGS (4)
  1. PENTOSTATIN [Suspect]
     Indication: HAIRY CELL LEUKAEMIA
     Dates: start: 20121105, end: 20121113
  2. PREVISCAN [Suspect]
     Indication: PRODUCT USED FOR UNKNOWN INDICATION
     Dates: start: 20121029, end: 20121113
  3. TRIFLUCAN [Suspect]
     Indication: PRODUCT USED FOR UNKNOWN INDICATION
     Dates: start: 20121029, end: 20121113
  4. CORDARONE [Concomitant]

REACTIONS (3)
  - Toxic skin eruption [None]
  - Hyperthermia [None]
  - Chills [None]
